FAERS Safety Report 8761337 (Version 5)
Quarter: 2016Q3

REPORT INFORMATION
  Report Type: Spontaneous
  Country: US (occurrence: US)
  Receive Date: 20120830
  Receipt Date: 20160812
  Transmission Date: 20161109
  Serious: Yes (Hospitalization, Other)
  Sender: FDA-Public Use
  Company Number: US-009507513-1111USA03240

PATIENT
  Sex: Female
  Weight: 73.94 kg

DRUGS (4)
  1. CALCIUM (UNSPECIFIED) (+) VITAMIN D (UNSPECIFIED) [Concomitant]
     Active Substance: CALCIUM CARBONATE\VITAMIN D
     Indication: PRODUCT USED FOR UNKNOWN INDICATION
     Dosage: 500 MG, BID
     Route: 048
  2. EVISTA [Concomitant]
     Active Substance: RALOXIFENE HYDROCHLORIDE
     Indication: OSTEOPOROSIS
     Route: 048
  3. FOSAMAX [Suspect]
     Active Substance: ALENDRONATE SODIUM
     Dosage: 70 MG, UNKNOWN
     Route: 048
     Dates: start: 200701, end: 201101
  4. FOSAMAX [Suspect]
     Active Substance: ALENDRONATE SODIUM
     Indication: OSTEOPOROSIS
     Dosage: 70 MG, UNK
     Route: 048
     Dates: end: 201102

REACTIONS (18)
  - Hyperlipidaemia [Unknown]
  - Hypertension [Unknown]
  - Gout [Unknown]
  - Constipation [Unknown]
  - Lung neoplasm malignant [Unknown]
  - Fall [Unknown]
  - Osteopenia [Unknown]
  - Chronic obstructive pulmonary disease [Unknown]
  - Body height decreased [Unknown]
  - Open reduction of fracture [Unknown]
  - Femur fracture [Unknown]
  - Fall [Unknown]
  - Hypothyroidism [Unknown]
  - Cardiac murmur [Unknown]
  - Gait disturbance [Unknown]
  - Malignant melanoma [Unknown]
  - Meniscus injury [Unknown]
  - Fibrocystic breast disease [Unknown]

NARRATIVE: CASE EVENT DATE: 200011
